FAERS Safety Report 9518100 (Version 1)
Quarter: 2013Q1

REPORT INFORMATION
  Report Type: Spontaneous
  Country: US (occurrence: None)
  Receive Date: 20130305
  Receipt Date: 20130305
  Transmission Date: 20140127
  Serious: Yes (Other)
  Sender: FDA-Public Use
  Company Number: 163-21880-12120510

PATIENT
  Age: 68 Year
  Sex: 0

DRUGS (6)
  1. REVLIMID [Suspect]
     Indication: PLASMA CELL MYELOMA
     Route: 048
     Dates: start: 20110130
  2. ALLOPURINOL (ALLOPURINOL) (UNKNOWN) [Concomitant]
  3. AMLODIPINE BESILATE (AMLODIPINE BESYLATE) (UNKNOWN) [Concomitant]
  4. DEXAMETHASONE (DEXAMETHASONE) (UNKNOWN) [Concomitant]
  5. FE C (IRON) [Concomitant]
  6. METFORMIN HCL (METFORMIN HYDROCHLORIDE)(UNKNOWN) [Concomitant]

REACTIONS (2)
  - Blood potassium decreased [None]
  - Blood magnesium decreased [None]
